FAERS Safety Report 6609927-3 (Version None)
Quarter: 2010Q1

REPORT INFORMATION
  Report Type: 
  Country: None (occurrence: None)
  Receive Date: 20100224
  Receipt Date: 20100212
  Transmission Date: 20100710
  Serious: Yes (Other)
  Sender: FDA-Public Use
  Company Number: CV20100077

PATIENT
  Age: 65 Year
  Sex: Male

DRUGS (1)
  1. FUROSEMIDE (MANUFACTURER UNKNOWN) (FUROSEMIDE) (FUROSEMIDE) [Suspect]
     Indication: RENAL FAILURE CHRONIC

REACTIONS (4)
  - BLOOD CREATININE INCREASED [None]
  - BLOOD UREA INCREASED [None]
  - LICHENOID KERATOSIS [None]
  - SKIN HYPERPIGMENTATION [None]
